FAERS Safety Report 5477703-3 (Version None)
Quarter: 2007Q4

REPORT INFORMATION
  Report Type: 
  Country: None (occurrence: None)
  Receive Date: 20071003
  Receipt Date: 20071003
  Transmission Date: 20080405
  Serious: Yes (Hospitalization)
  Sender: FDA-Public Use
  Company Number: None

PATIENT
  Age: 75 Year
  Sex: Female

DRUGS (1)
  1. ACITRETIN [Suspect]
     Indication: RASH PAPULAR
     Dosage: 30 MG 1 PER 1 DAY ORAL
     Route: 048
     Dates: start: 20070711, end: 20070722

REACTIONS (1)
  - BLISTER [None]
